FAERS Safety Report 12762909 (Version 2)
Quarter: 2016Q4

REPORT INFORMATION
  Report Type: Report from Study
  Country: US (occurrence: US)
  Receive Date: 20160920
  Receipt Date: 20161010
  Transmission Date: 20170207
  Serious: No
  Sender: FDA-Public Use
  Company Number: US-AMGEN-USASL2016116468

PATIENT
  Age: 62 Year
  Sex: Female

DRUGS (1)
  1. ENBREL [Suspect]
     Active Substance: ETANERCEPT
     Indication: PSORIATIC ARTHROPATHY
     Dosage: 50 MG, 2 TIMES/WK
     Route: 065

REACTIONS (8)
  - Viral infection [Unknown]
  - Burning sensation [Unknown]
  - Hypoaesthesia [Unknown]
  - Diarrhoea [Unknown]
  - Increased upper airway secretion [Unknown]
  - Pruritus [Unknown]
  - Intentional product misuse [Unknown]
  - Cough [Unknown]
